FAERS Safety Report 25240442 (Version 1)
Quarter: 2025Q2

REPORT INFORMATION
  Report Type: Spontaneous
  Country: CN (occurrence: CN)
  Receive Date: 20250425
  Receipt Date: 20250425
  Transmission Date: 20250716
  Serious: Yes (Hospitalization)
  Sender: ROCHE
  Company Number: CN-ROCHE-10000262954

PATIENT
  Age: 1 Year
  Sex: Male
  Weight: 12.2 kg

DRUGS (1)
  1. EMICIZUMAB [Suspect]
     Active Substance: EMICIZUMAB
     Indication: Factor VIII deficiency
     Route: 065
     Dates: start: 20230704

REACTIONS (5)
  - Fall [Unknown]
  - Extradural haematoma [Unknown]
  - Skull fractured base [Unknown]
  - Skull fracture [Unknown]
  - Scalp haematoma [Unknown]

NARRATIVE: CASE EVENT DATE: 20240101
